FAERS Safety Report 8280832 (Version 7)
Quarter: 2015Q3

REPORT INFORMATION
  Report Type: Spontaneous
  Country: JP (occurrence: None)
  Receive Date: 20111202
  Receipt Date: 20150819
  Transmission Date: 20151125
  Serious: Yes (Hospitalization, Other)
  Sender: FDA-Public Use
  Company Number: 2009JP005556

PATIENT
  Age: 25 Year
  Sex: Female
  Weight: 46 kg

DRUGS (32)
  1. NU-LOTAN (LOSARTAN POTASSIUM) [Concomitant]
  2. LOXONIN (LOXOPROFEN SODIUM) [Concomitant]
  3. BUSCOPAN (HYOSCINE BUTYLBROMIDE) (HYOSCINE BUTYLBROMIDE) [Concomitant]
     Active Substance: BUTYLSCOPOLAMINE
  4. ADOAIR (FLUTICASONE PROPIONATE, SALMETEROL XINAFOATE) [Concomitant]
  5. MEDROL [Suspect]
     Active Substance: METHYLPREDNISOLONE
     Indication: LUPUS NEPHRITIS
     Route: 048
     Dates: end: 20070824
  6. ENDOXAN (CYCLOPHOSPHAMIDE) [Concomitant]
     Active Substance: CYCLOPHOSPHAMIDE
  7. EPADEL-S (ETHYL ICOSAPENTATE) [Concomitant]
  8. BENET (RISEDRONATE SODIUM) [Concomitant]
  9. TAKEPRON (LANSOPRAZOLE) [Concomitant]
  10. CEFZON (CEFDINIR) CAPSULE [Concomitant]
  11. GASTER [Concomitant]
     Active Substance: FAMOTIDINE
  12. CRAVIT (LEVOFLOXACIN) EYE DROPS, 0.5% [Concomitant]
     Active Substance: LEVOFLOXACIN
  13. BAYASPIRIN (ACETYLSALICYLIC ACID) (ACETYLSALICYLIC ACID) [Concomitant]
     Active Substance: ASPIRIN
  14. GLAKAY (MENATETRENONE) [Concomitant]
  15. STROCAIN (OXETACAINE) [Concomitant]
  16. U-PASTA (POVIDONE-IODINE, SUCROSE) [Concomitant]
  17. BIOFERMIN R (STREPTOCOCCUS FAECALIS) [Concomitant]
  18. ASTOMIN (DIMEMORFAN) [Concomitant]
  19. FIBLAST (ASCORBIC ACID, HESPERIDIN METHYL CHALCONE, RUSCUS ACULEATUS) [Concomitant]
  20. PROGRAF [Suspect]
     Active Substance: TACROLIMUS\TACROLIMUS ANHYDROUS
     Indication: LUPUS NEPHRITIS
     Route: 048
     Dates: start: 20070822, end: 20080525
  21. PANVITAN (VITAMINS NOS) [Concomitant]
  22. SELBEX (TEPRENONE) [Concomitant]
     Active Substance: TEPRENONE
  23. CIPROXAN (CIPROFLOXACIN HYDROCHLORIDE) [Concomitant]
  24. ALFAROL [Concomitant]
     Active Substance: ALFACALCIDOL
  25. PERSANTIN (DIPYRIDAMOLE) [Concomitant]
  26. BONALON (ALENDRONIC ACID) [Concomitant]
  27. PL GRAN. (CAFFEINE, PARACETAMOL, PROMETHAZINE METHYLENE DISALICYLATE, SALICYLAMIDE) [Concomitant]
  28. TALION (BEPOTASTINE BESILATE) [Concomitant]
  29. GENTACIN (GENTAMICIN SULFATE) [Concomitant]
  30. ISODINE GARGLE (POVIDONE-IODINE) [Concomitant]
  31. MEDICON (DEXTROMETHORPHAN HYDROBROMIDE) [Concomitant]
     Active Substance: DEXTROMETHORPHAN HYDROBROMIDE
  32. METHYCOBAL (MECOBALAMIN) [Concomitant]

REACTIONS (30)
  - Glaucoma [None]
  - Neuropathy peripheral [None]
  - Infection [None]
  - Nephrolithiasis [None]
  - Upper respiratory tract inflammation [None]
  - Infected skin ulcer [None]
  - Calculus urinary [None]
  - Ota^s naevus [None]
  - Injury [None]
  - Lower limb fracture [None]
  - Thoracic vertebral fracture [None]
  - Nasopharyngitis [None]
  - Synovial cyst [None]
  - Condition aggravated [None]
  - Plantar fasciitis [None]
  - Community acquired infection [None]
  - Infection susceptibility increased [None]
  - Meniscus injury [None]
  - Pharyngitis [None]
  - Ovarian cyst [None]
  - Abdominal pain upper [None]
  - Spondylolisthesis [None]
  - Foot fracture [None]
  - Osteoarthritis [None]
  - Spinal compression fracture [None]
  - Leiomyoma [None]
  - Headache [None]
  - Urinary tract infection [None]
  - Gastroenteritis [None]
  - Osteoporotic fracture [None]
